FAERS Safety Report 5592561-4 (Version None)
Quarter: 2008Q1

REPORT INFORMATION
  Report Type: 
  Country: None (occurrence: None)
  Receive Date: 20080111
  Receipt Date: 20071227
  Transmission Date: 20080703
  Serious: Yes (Hospitalization)
  Sender: FDA-Public Use
  Company Number: DSA_31142_2008

PATIENT
  Sex: Female

DRUGS (7)
  1. CARDIZEM [Suspect]
     Indication: ANGINA PECTORIS
     Dosage: (90 MG QD)
  2. MONOKET [Suspect]
     Indication: ANGINA PECTORIS
     Dosage: (50 MG)
  3. COSOPT [Concomitant]
  4. XALATAN [Concomitant]
  5. RANITIDINE [Concomitant]
  6. ALBYL-E [Concomitant]
  7. SIMVASTATIN [Suspect]
     Indication: CORONARY ARTERY DISEASE
     Dosage: (80 MG)

REACTIONS (2)
  - DRUG INTERACTION [None]
  - RHABDOMYOLYSIS [None]
